FAERS Safety Report 22224887 (Version 1)
Quarter: 2023Q2

REPORT INFORMATION
  Report Type: Spontaneous
  Country: JP (occurrence: JP)
  Receive Date: 20230418
  Receipt Date: 20230418
  Transmission Date: 20230722
  Serious: Yes (Death, Other)
  Sender: FDA-Public Use
  Company Number: A202300222-001

PATIENT
  Age: 51 Year
  Sex: Female

DRUGS (2)
  1. BENDAMUSTINE HYDROCHLORIDE [Suspect]
     Active Substance: BENDAMUSTINE HYDROCHLORIDE
     Indication: Chronic lymphocytic leukaemia stage 3
     Dosage: UNK, BR THERAPY
     Route: 042
  2. RITUXIMAB [Concomitant]
     Active Substance: RITUXIMAB
     Indication: Chronic lymphocytic leukaemia stage 3
     Dosage: UNK, BR THERAPY
     Route: 042

REACTIONS (2)
  - Cerebral haemorrhage [Fatal]
  - Myelosuppression [Not Recovered/Not Resolved]
